FAERS Safety Report 8921172 (Version 1)
Quarter: 2012Q4

REPORT INFORMATION
  Report Type: 
  Country: US (occurrence: US)
  Receive Date: 20121122
  Receipt Date: 20121122
  Transmission Date: 20130627
  Serious: Yes (Death, Hospitalization, Other)
  Sender: FDA-Public Use
  Company Number: US-PAR PHARMACEUTICAL, INC-2012SCPR004715

PATIENT

DRUGS (4)
  1. CLONAZEPAM [Suspect]
     Indication: PRODUCT USED FOR UNKNOWN INDICATION
     Dosage: UNK, Unknown
     Route: 065
  2. CARISOPRODOL [Suspect]
     Indication: PRODUCT USED FOR UNKNOWN INDICATION
     Dosage: UNK, Unknown
     Route: 065
  3. ATIVAN [Suspect]
     Indication: PRODUCT USED FOR UNKNOWN INDICATION
     Dosage: UNK, Unknown
     Route: 065
  4. MELATONIN [Suspect]
     Indication: PRODUCT USED FOR UNKNOWN INDICATION
     Dosage: UNK, Unknown
     Route: 065

REACTIONS (9)
  - Toxicity to various agents [Fatal]
  - Urinary bladder rupture [Fatal]
  - Soft tissue haemorrhage [Fatal]
  - Death [Fatal]
  - Coma scale abnormal [Unknown]
  - Pneumonia aspiration [Fatal]
  - Tachypnoea [Unknown]
  - Hyperhidrosis [Unknown]
  - Pain [Unknown]
